FAERS Safety Report 13373026 (Version 1)
Quarter: 2017Q1

REPORT INFORMATION
  Report Type: Spontaneous
  Country: DK (occurrence: DK)
  Receive Date: 20170327
  Receipt Date: 20170327
  Transmission Date: 20170429
  Serious: Yes (Disabling)
  Sender: FDA-Public Use
  Company Number: DK-TEVA-750914ACC

PATIENT
  Age: 73 Year
  Sex: Female

DRUGS (1)
  1. ALENDRONAT TEVA [Suspect]
     Active Substance: ALENDRONATE SODIUM
     Indication: OSTEOPOROSIS
     Route: 048
     Dates: start: 20080219

REACTIONS (12)
  - Osteonecrosis of jaw [Not Recovered/Not Resolved]
  - Paraesthesia oral [Unknown]
  - Tooth extraction [Recovered/Resolved]
  - Abscess oral [Unknown]
  - Local swelling [Unknown]
  - Dental fistula [Recovered/Resolved]
  - Bone graft [Recovered/Resolved]
  - Jaw disorder [Unknown]
  - Jaw operation [Unknown]
  - Pain in jaw [Unknown]
  - Hypoaesthesia [Unknown]
  - Dysphagia [Unknown]

NARRATIVE: CASE EVENT DATE: 2010
